FAERS Safety Report 25906286 (Version 1)
Quarter: 2025Q4

REPORT INFORMATION
  Report Type: Spontaneous
  Country: US (occurrence: US)
  Receive Date: 20251010
  Receipt Date: 20251010
  Transmission Date: 20260117
  Serious: No
  Sender: BAUSCH AND LOMB
  Company Number: US-BAUSCHBL-2025BNL013593

PATIENT
  Age: 63 Year
  Sex: Female

DRUGS (3)
  1. LOTEMAX SM [Suspect]
     Active Substance: LOTEPREDNOL ETABONATE
     Indication: Dry eye
     Dosage: QID (FOUR TIMES A DAY)
     Route: 065
  2. LOTEMAX SM [Suspect]
     Active Substance: LOTEPREDNOL ETABONATE
     Indication: Eye inflammation
     Dosage: QID (FOUR TIMES A DAY)
     Route: 065
  3. LOTEMAX SM [Suspect]
     Active Substance: LOTEPREDNOL ETABONATE
     Indication: Conjunctivitis allergic

REACTIONS (7)
  - Superficial injury of eye [Unknown]
  - Product use issue [Unknown]
  - Product delivery mechanism issue [Unknown]
  - Wrong technique in product usage process [Unknown]
  - Product knowledge deficit [Unknown]
  - Circumstance or information capable of leading to medication error [Unknown]
  - Product container issue [Unknown]
